FAERS Safety Report 17324072 (Version 1)
Quarter: 2020Q1

REPORT INFORMATION
  Report Type: Spontaneous
  Country: US (occurrence: US)
  Receive Date: 20200127
  Receipt Date: 20200127
  Transmission Date: 20200409
  Serious: No
  Sender: FDA-Public Use
  Company Number: US-JNJFOC-20200112123

PATIENT
  Age: 15 Month
  Sex: Female
  Weight: 9.53 kg

DRUGS (1)
  1. ZYRTEC [Suspect]
     Active Substance: CETIRIZINE HYDROCHLORIDE
     Indication: ACCIDENTAL EXPOSURE TO PRODUCT
     Dosage: UNKNOWN ONCE
     Route: 048
     Dates: start: 20200106

REACTIONS (3)
  - Accidental exposure to product [Unknown]
  - Psychomotor hyperactivity [Unknown]
  - Irritability [Unknown]

NARRATIVE: CASE EVENT DATE: 20200106
